FAERS Safety Report 19857526 (Version 1)
Quarter: 2021Q3

REPORT INFORMATION
  Report Type: Spontaneous
  Country: CA (occurrence: CA)
  Receive Date: 20210920
  Receipt Date: 20210920
  Transmission Date: 20211014
  Serious: Yes (Other)
  Sender: FDA-Public Use
  Company Number: CA-BRACCO-2021CA04008

PATIENT
  Age: 51 Year
  Sex: Male

DRUGS (3)
  1. SONOVUE [Suspect]
     Active Substance: SULFUR HEXAFLUORIDE
     Indication: DIAGNOSTIC PROCEDURE
     Dosage: UNKNOWN
     Route: 042
  2. SONOVUE [Suspect]
     Active Substance: SULFUR HEXAFLUORIDE
     Indication: DIAGNOSTIC PROCEDURE
     Dosage: UNKNOWN
     Route: 042
  3. SONOVUE [Suspect]
     Active Substance: SULFUR HEXAFLUORIDE
     Indication: DIAGNOSTIC PROCEDURE
     Dosage: UNKNOWN
     Route: 042

REACTIONS (14)
  - Liver injury [Unknown]
  - Hepatic enzyme increased [Unknown]
  - Faeces pale [Unknown]
  - Urticaria [Unknown]
  - Inflammation [Unknown]
  - Insomnia [Unknown]
  - Nausea [Unknown]
  - Pyrexia [Unknown]
  - Pain [Unknown]
  - Mental disorder [Unknown]
  - Fatigue [Unknown]
  - Chromaturia [Unknown]
  - Skin exfoliation [Unknown]
  - Rash [Unknown]
